FAERS Safety Report 13535525 (Version 2)
Quarter: 2017Q2

REPORT INFORMATION
  Report Type: Spontaneous
  Country: DE (occurrence: DE)
  Receive Date: 20170511
  Receipt Date: 20170526
  Transmission Date: 20170830
  Serious: No
  Sender: FDA-Public Use
  Company Number: DE-BEH-2017080261

PATIENT
  Age: 21 Year
  Sex: Male
  Weight: 120 kg

DRUGS (1)
  1. IDELVION [Suspect]
     Active Substance: COAGULATION FACTOR IX RECOMBINANT HUMAN
     Indication: PROPHYLAXIS
     Dosage: 6000 IU, QW
     Route: 065
     Dates: start: 20161027

REACTIONS (1)
  - Haematuria [Recovered/Resolved]
